FAERS Safety Report 8116512-3 (Version None)
Quarter: 2012Q1

REPORT INFORMATION
  Report Type: 
  Country: None (occurrence: None)
  Receive Date: 20120206
  Receipt Date: 20120127
  Transmission Date: 20120608
  Serious: Yes (Hospitalization, Other)
  Sender: FDA-Public Use
  Company Number: US-BAYER-2011-087368

PATIENT
  Sex: Female
  Weight: 54.422 kg

DRUGS (10)
  1. PROTONIX [Concomitant]
  2. ONDANSETRON HCL [Concomitant]
  3. YASMIN [Suspect]
     Indication: CONTRACEPTION
     Dosage: UNK
     Dates: start: 20060101, end: 20090101
  4. ADVAIR DISKUS 100/50 [Concomitant]
  5. DROSPIRENONE AND ETHINYL ESTRADIOL [Suspect]
     Indication: CONTRACEPTION
     Dosage: UNK
     Dates: start: 20060101, end: 20090101
  6. ALBUTEROL [Concomitant]
  7. ELAVIL [Concomitant]
  8. VICODIN [Concomitant]
     Indication: PAIN
  9. FLOVENT [Concomitant]
     Indication: ASTHMA
  10. ZYRTEC [Concomitant]

REACTIONS (3)
  - GALLBLADDER DISORDER [None]
  - CHOLECYSTITIS CHRONIC [None]
  - PAIN [None]
